FAERS Safety Report 23046281 (Version 1)
Quarter: 2023Q4

REPORT INFORMATION
  Report Type: Spontaneous
  Country: US (occurrence: US)
  Receive Date: 20231009
  Receipt Date: 20231009
  Transmission Date: 20240109
  Serious: No
  Sender: FDA-Public Use
  Company Number: US-AMGEN-USASP2023176764

PATIENT

DRUGS (2)
  1. REPATHA [Suspect]
     Active Substance: EVOLOCUMAB
     Indication: Blood cholesterol increased
     Dosage: UNK
     Route: 065
  2. REPATHA [Suspect]
     Active Substance: EVOLOCUMAB
     Indication: Type IIa hyperlipidaemia

REACTIONS (10)
  - Dyspnoea [Unknown]
  - Pulmonary pain [Unknown]
  - Rhinitis [Unknown]
  - Pyrexia [Unknown]
  - Ear discomfort [Unknown]
  - Abdominal pain upper [Unknown]
  - Dizziness [Unknown]
  - Sinusitis [Unknown]
  - Headache [Recovered/Resolved]
  - Influenza [Unknown]
